FAERS Safety Report 7025481 (Version 2)
Quarter: 2019Q1

REPORT INFORMATION
  Report Type: Spontaneous
  Country: US (occurrence: US)
  Receive Date: 20090129
  Receipt Date: 20190219
  Transmission Date: 20190418
  Serious: Yes (Other)
  Sender: FDA-Public Use
  Company Number: US-PFIZER INC-2009157027

PATIENT
  Age: 15 Year
  Sex: Male

DRUGS (8)
  1. MUROMONAB-CD3 [Suspect]
     Active Substance: MUROMONAB-CD3
     Indication: BONE MARROW TRANSPLANT
     Dosage: UNK
  2. FLUDARABINE PHOSPHATE. [Suspect]
     Active Substance: FLUDARABINE PHOSPHATE
     Indication: BONE MARROW TRANSPLANT
     Dosage: UNK
  3. CYTARABINE. [Suspect]
     Active Substance: CYTARABINE
     Indication: LYMPHOCYTIC LEUKAEMIA
     Dosage: UNK
  4. HYDROCORTISONE ACETATE. [Suspect]
     Active Substance: HYDROCORTISONE ACETATE
     Indication: LYMPHOCYTIC LEUKAEMIA
     Dosage: UNK
  5. THIOTEPA. [Suspect]
     Active Substance: THIOTEPA
     Indication: BONE MARROW TRANSPLANT
     Dosage: UNK
  6. MELPHALAN. [Suspect]
     Active Substance: MELPHALAN
     Indication: BONE MARROW TRANSPLANT
     Dosage: UNK
  7. METHOTREXATE SODIUM. [Suspect]
     Active Substance: METHOTREXATE SODIUM
     Indication: LYMPHOCYTIC LEUKAEMIA
     Dosage: UNK
  8. TOPOTECAN HYDROCHLORIDE. [Suspect]
     Active Substance: TOPOTECAN HYDROCHLORIDE
     Indication: LYMPHOCYTIC LEUKAEMIA
     Dosage: UNK

REACTIONS (2)
  - Leukoencephalopathy [Recovering/Resolving]
  - Myelopathy [Not Recovered/Not Resolved]
